FAERS Safety Report 5019427-2 (Version None)
Quarter: 2006Q2

REPORT INFORMATION
  Report Type: 
  Country: None (occurrence: None)
  Receive Date: 20060531
  Receipt Date: 20060519
  Transmission Date: 20061013
  Serious: Yes (Disabling)
  Sender: FDA-Public Use
  Company Number: HQWYE447122MAY06

PATIENT
  Age: 53 Year
  Sex: Female

DRUGS (3)
  1. RAPAMUNE [Suspect]
     Indication: PROPHYLAXIS AGAINST TRANSPLANT REJECTION
     Dosage: 2 MG; ORAL
     Route: 048
     Dates: start: 20051124, end: 20060517
  2. INSULIN [Concomitant]
  3. FLUVASTATIN            (FLUVASTATIN) [Concomitant]

REACTIONS (1)
  - ASTHENIA [None]
